FAERS Safety Report 9341369 (Version 1)
Quarter: 2013Q2

REPORT INFORMATION
  Report Type: Other
  Country: GB (occurrence: GB)
  Receive Date: 20130611
  Receipt Date: 20130611
  Transmission Date: 20140414
  Serious: Yes (Life-Threatening, Other)
  Sender: FDA-Public Use
  Company Number: GB-SUN PHARMACEUTICAL INDUSTRIES LTD-2013SUN00683

PATIENT
  Age: 73 Year
  Sex: Female
  Weight: 44 kg

DRUGS (10)
  1. PANTOPRAZOLE 40 MG POWDER FOR SOLUTION FOR INJECTION [Suspect]
     Indication: GASTROINTESTINAL HAEMORRHAGE
     Dosage: 40 MG, PER DAY
     Route: 042
     Dates: start: 20130513, end: 20130515
  2. AMLODIPINE [Concomitant]
     Dosage: 5MG PER DAY
     Route: 048
  3. CLOPIDOGREL [Concomitant]
     Dosage: 75 MG PER DAY
     Route: 048
  4. DALTEPARIN [Concomitant]
     Dosage: 5000 IU PER DAY
     Route: 058
  5. BISOPROLOL [Concomitant]
     Dosage: 5 MG PER DAY
     Route: 048
  6. DOMPERIDONE [Concomitant]
     Dosage: 10 MG PER DAY
     Route: 048
  7. FERROUS SULFATE [Concomitant]
     Dosage: 200 MG THREE TIMES A DAY
     Route: 048
  8. FUROSEMIDE [Concomitant]
     Dosage: 40 MG PER DAY
     Route: 048
  9. LANSOPRAZOLE [Concomitant]
     Dosage: 30 MG PER DAY
     Route: 048
  10. PARACETAMOL [Concomitant]
     Dosage: 1 G, FOUR TIME A DAY
     Route: 048

REACTIONS (1)
  - Swollen tongue [Not Recovered/Not Resolved]
